FAERS Safety Report 8427751-6 (Version None)
Quarter: 2012Q2

REPORT INFORMATION
  Report Type: 
  Country: None (occurrence: None)
  Receive Date: 20120611
  Receipt Date: 20120601
  Transmission Date: 20120825
  Serious: Yes (Hospitalization)
  Sender: FDA-Public Use
  Company Number: US-BAXTER-2012BAX004803

PATIENT
  Sex: Female

DRUGS (2)
  1. DIANEAL [Suspect]
     Indication: PERITONEAL DIALYSIS
     Route: 033
     Dates: end: 20120510
  2. DIANEAL [Suspect]
     Route: 033
     Dates: end: 20120510

REACTIONS (4)
  - PANCREATITIS [None]
  - FUNGAL PERITONITIS [None]
  - PERITONEAL DISORDER [None]
  - PROCEDURAL PAIN [None]
